FAERS Safety Report 24768062 (Version 1)
Quarter: 2024Q4

REPORT INFORMATION
  Report Type: Spontaneous
  Country: CN (occurrence: CN)
  Receive Date: 20241223
  Receipt Date: 20241223
  Transmission Date: 20250115
  Serious: Yes (Hospitalization, Other)
  Sender: PFIZER
  Company Number: CN-PFIZER INC-PV202400165249

PATIENT
  Age: 10 Year
  Sex: Female
  Weight: 25.5 kg

DRUGS (1)
  1. CYTARABINE [Suspect]
     Active Substance: CYTARABINE
     Indication: Acute lymphocytic leukaemia
     Dosage: 0.074 G, 1X/DAY
     Route: 041
     Dates: start: 20241201, end: 20241201

REACTIONS (5)
  - Myelosuppression [Recovering/Resolving]
  - Agranulocytosis [Recovering/Resolving]
  - Infection [Unknown]
  - Procalcitonin increased [Recovering/Resolving]
  - C-reactive protein increased [Recovering/Resolving]

NARRATIVE: CASE EVENT DATE: 20241208
